FAERS Safety Report 7712456-7 (Version None)
Quarter: 2011Q3

REPORT INFORMATION
  Report Type: 
  Country: None (occurrence: None)
  Receive Date: 20110826
  Receipt Date: 20110824
  Transmission Date: 20111222
  Serious: Yes (Death, Hospitalization)
  Sender: FDA-Public Use
  Company Number: JP-ABBOTT-10P-087-0627174-00

PATIENT
  Sex: Male

DRUGS (8)
  1. NORVIR [Suspect]
     Indication: HIV INFECTION
     Route: 048
     Dates: start: 20090401, end: 20100104
  2. MS CONTIN [Concomitant]
     Indication: NEURALGIA
     Dates: start: 20090619, end: 20100104
  3. NOVACT M FUJISAWA [Concomitant]
     Indication: FACTOR IX DEFICIENCY
     Dates: start: 20090401, end: 20100104
  4. GARENOXACIN MESYLATE [Concomitant]
     Indication: PNEUMONIA
     Dates: start: 20091202, end: 20091209
  5. FLUCONAZOLE [Concomitant]
     Indication: ORAL CANDIDIASIS
     Dates: start: 20091202, end: 20091209
  6. ISENTRESS [Suspect]
     Indication: HIV INFECTION
     Route: 048
     Dates: start: 20090401, end: 20100104
  7. PREZISTA [Suspect]
     Indication: HIV INFECTION
     Route: 048
     Dates: start: 20090401, end: 20100104
  8. EPIVIR [Suspect]
     Indication: HIV INFECTION
     Route: 048
     Dates: start: 20090401, end: 20100104

REACTIONS (1)
  - BRAIN STEM HAEMORRHAGE [None]
